FAERS Safety Report 6667092-0 (Version None)
Quarter: 2010Q2

REPORT INFORMATION
  Report Type: 
  Country: None (occurrence: None)
  Receive Date: 20100405
  Receipt Date: 20100330
  Transmission Date: 20101027
  Serious: Yes (Hospitalization)
  Sender: FDA-Public Use
  Company Number: GB-BRISTOL-MYERS SQUIBB COMPANY-15004476

PATIENT
  Age: 38 Year
  Sex: Female

DRUGS (4)
  1. ABILIFY [Suspect]
     Dosage: 9.75 MG IN MORNING; IM
  2. VALPROATE SODIUM [Suspect]
     Dosage: INCREASED TO 2500 MG
  3. FOLIC ACID [Suspect]
  4. CANNABIS [Concomitant]

REACTIONS (2)
  - BIPOLAR DISORDER [None]
  - DRUG ABUSE [None]
